FAERS Safety Report 4385814-9 (Version None)
Quarter: 2004Q2

REPORT INFORMATION
  Report Type: 
  Country: None (occurrence: None)
  Receive Date: 20040628
  Receipt Date: 20040513
  Transmission Date: 20050107
  Serious: Yes (Hospitalization)
  Sender: FDA-Public Use
  Company Number: GB-ROCHE-367577

PATIENT
  Age: 20 Year
  Sex: Male
  Weight: 68 kg

DRUGS (4)
  1. ROACCUTANE [Suspect]
     Indication: ACNE
     Route: 048
     Dates: start: 19981115, end: 19990315
  2. ROACCUTANE [Suspect]
     Route: 048
     Dates: start: 20000115, end: 20010515
  3. ROACCUTANE [Suspect]
     Route: 048
     Dates: start: 20011215, end: 20020415
  4. ROACCUTANE [Suspect]
     Route: 048
     Dates: start: 20030115, end: 20040415

REACTIONS (3)
  - COLITIS [None]
  - IRRITABLE BOWEL SYNDROME [None]
  - PROCTITIS [None]
